FAERS Safety Report 9575099 (Version 1)
Quarter: 2013Q4

REPORT INFORMATION
  Report Type: Spontaneous
  Country: US (occurrence: US)
  Receive Date: 20131001
  Receipt Date: 20131001
  Transmission Date: 20140711
  Serious: No
  Sender: FDA-Public Use
  Company Number: US-PURDUE-USA-2012-0081117

PATIENT
  Sex: Male

DRUGS (3)
  1. BUTRANS [Suspect]
     Indication: PRODUCT USED FOR UNKNOWN INDICATION
     Route: 062
  2. PERCOCET /00867901/ [Suspect]
     Indication: PAIN
  3. LORTAB /00607101/ [Suspect]
     Indication: PAIN

REACTIONS (2)
  - Drug interaction [Recovered/Resolved]
  - Pain [Recovered/Resolved]
